FAERS Safety Report 21120018 (Version 1)
Quarter: 2022Q3

REPORT INFORMATION
  Report Type: Spontaneous
  Country: CZ (occurrence: CZ)
  Receive Date: 20220722
  Receipt Date: 20220722
  Transmission Date: 20221027
  Serious: Yes (Life-Threatening, Hospitalization, Other)
  Sender: FDA-Public Use
  Company Number: None

PATIENT
  Age: 34 Year
  Sex: Female
  Weight: 55 kg

DRUGS (2)
  1. CLINDAMYCIN PHOSPHATE [Suspect]
     Active Substance: CLINDAMYCIN PHOSPHATE
     Indication: Pelvic inflammatory disease
     Dosage: EVERY SIX HOURS
     Route: 042
     Dates: start: 20220630, end: 20220704
  2. BROMAZEPAM [Concomitant]
     Active Substance: BROMAZEPAM
     Indication: Restlessness
     Dosage: 1,5 MG IN ONE DOSE IN ORDER TO CALM DOWN THE PATIENT
     Route: 048
     Dates: start: 20220704, end: 20220704

REACTIONS (2)
  - Dermatitis allergic [Recovered/Resolved]
  - Tongue oedema [Recovered/Resolved]

NARRATIVE: CASE EVENT DATE: 20220704
